FAERS Safety Report 9631466 (Version 2)
Quarter: 2013Q4

REPORT INFORMATION
  Report Type: Spontaneous
  Country: CA (occurrence: None)
  Receive Date: 20131007
  Receipt Date: 20131010
  Transmission Date: 20140711
  Serious: Yes (Other)
  Sender: FDA-Public Use
  Company Number: 2013038155

PATIENT
  Age: 3 Month
  Sex: Male

DRUGS (1)
  1. PRIVIGEN [Suspect]
     Indication: KAWASAKI^S DISEASE
     Dosage: TOTAL,  (NOT OTHERWISE SPECIFIED)
     Route: 042
     Dates: start: 20130913, end: 20130914

REACTIONS (7)
  - Acute haemolytic transfusion reaction [None]
  - Haemoglobin decreased [None]
  - ABO incompatibility [None]
  - Flushing [None]
  - Tachycardia [None]
  - Blood pressure diastolic decreased [None]
  - Respiratory rate increased [None]
